FAERS Safety Report 8173457 (Version 4)
Quarter: 2012Q4

REPORT INFORMATION
  Report Type: 
  Country: US (occurrence: US)
  Receive Date: 20111008
  Receipt Date: 20121008
  Transmission Date: 20130627
  Serious: Yes (Other)
  Sender: FDA-Public Use
  Company Number: US-ASTRAZENECA-2011SE58430

PATIENT
  Age: 56 Year
  Sex: Female

DRUGS (1)
  1. SEROQUEL [Suspect]
     Indication: BIPOLAR I DISORDER
     Route: 048

REACTIONS (9)
  - Neoplasm malignant [Unknown]
  - Thyroid disorder [Unknown]
  - Depression [Unknown]
  - Adverse event [Unknown]
  - Feeling abnormal [Unknown]
  - Insomnia [Unknown]
  - Nasopharyngitis [Unknown]
  - Intentional drug misuse [Unknown]
  - Drug dose omission [Unknown]
